FAERS Safety Report 20303585 (Version 1)
Quarter: 2022Q1

REPORT INFORMATION
  Report Type: Spontaneous
  Country: US (occurrence: None)
  Receive Date: 20220105
  Receipt Date: 20220105
  Transmission Date: 20220424
  Serious: Yes (Hospitalization)
  Sender: FDA-Public Use
  Company Number: None

PATIENT
  Sex: Female

DRUGS (7)
  1. DALFAMPRIDINE [Suspect]
     Active Substance: DALFAMPRIDINE
  2. COPAXONE [Concomitant]
  3. COPAXONE INJ [Concomitant]
  4. DALFAMPRIDIN TAB [Concomitant]
  5. FISH OIL CAP [Concomitant]
  6. ROSUVASTATIN [Concomitant]
  7. VITAMIN D3 [Concomitant]

REACTIONS (3)
  - Fall [None]
  - Scapula fracture [None]
  - Therapy interrupted [None]
